FAERS Safety Report 16017076 (Version 1)
Quarter: 2019Q1

REPORT INFORMATION
  Report Type: Spontaneous
  Country: US (occurrence: US)
  Receive Date: 20190228
  Receipt Date: 20190228
  Transmission Date: 20190418
  Serious: Yes (Hospitalization)
  Sender: FDA-Public Use
  Company Number: US-PERNIX THERAPEUTICS-US-2019PER000025

PATIENT

DRUGS (2)
  1. POLY-IRON 150 MG POLYSACCRIDE IRON CONTRACT PHARMACAL CORPORATION [Suspect]
     Active Substance: DIETARY SUPPLEMENT
     Indication: IRON DEFICIENCY
     Dosage: 150 MG, 1-2 TABLETS
     Route: 048
     Dates: start: 201901, end: 2019
  2. POLY-IRON 150 MG POLYSACCRIDE IRON CONTRACT PHARMACAL CORPORATION [Suspect]
     Active Substance: DIETARY SUPPLEMENT
     Dosage: 150MG TABLETS 4 IN MORNING AND 4 IN THE EVENING
     Route: 048

REACTIONS (2)
  - Intentional overdose [Recovered/Resolved]
  - Cerebrovascular accident [Recovering/Resolving]

NARRATIVE: CASE EVENT DATE: 201901
